FAERS Safety Report 24458191 (Version 1)
Quarter: 2024Q4

REPORT INFORMATION
  Report Type: Spontaneous
  Country: US (occurrence: US)
  Receive Date: 20241018
  Receipt Date: 20241018
  Transmission Date: 20250115
  Serious: Yes (Other)
  Sender: CHEPLAPHARM
  Company Number: US-CHEPLA-2024013161

PATIENT
  Age: 26 Year

DRUGS (6)
  1. OLANZAPINE [Suspect]
     Active Substance: OLANZAPINE
     Indication: Bipolar disorder
     Dates: start: 1996
  2. OLANZAPINE [Suspect]
     Active Substance: OLANZAPINE
     Indication: Obsessive-compulsive disorder
     Dates: start: 1996
  3. OLANZAPINE [Suspect]
     Active Substance: OLANZAPINE
     Indication: Depression
     Dates: start: 1996
  4. OLANZAPINE [Suspect]
     Active Substance: OLANZAPINE
     Indication: Bipolar disorder
     Dosage: EXTRA 5 MG ZYPREXA
  5. OLANZAPINE [Suspect]
     Active Substance: OLANZAPINE
     Indication: Obsessive-compulsive disorder
     Dosage: EXTRA 5 MG ZYPREXA
  6. OLANZAPINE [Suspect]
     Active Substance: OLANZAPINE
     Indication: Depression
     Dosage: EXTRA 5 MG ZYPREXA

REACTIONS (2)
  - Suicidal ideation [Recovered/Resolved]
  - Mood swings [Unknown]
